FAERS Safety Report 6711414-9 (Version None)
Quarter: 2010Q2

REPORT INFORMATION
  Report Type: 
  Country: None (occurrence: None)
  Receive Date: 20100504
  Receipt Date: 20100504
  Transmission Date: 20101027
  Serious: Yes (Hospitalization)
  Sender: FDA-Public Use
  Company Number: None

PATIENT
  Sex: Male
  Weight: 94 kg

DRUGS (18)
  1. CASODEX [Suspect]
     Dosage: 50 MG
  2. ZOLADEX [Suspect]
     Dosage: 10.8 MG
  3. OXYCODONE AND ACETAMINOPHEN [Concomitant]
  4. ALLEGRA [Concomitant]
  5. ATROPINE-DIPHENOXYLATE [Concomitant]
  6. BICALUTAMIDE [Concomitant]
  7. GUAIFENESIN AND DEXTROMETHORPHAN HBR [Concomitant]
  8. ENALAPRIL MALEATE [Concomitant]
  9. ESOMEPRAZOLE [Concomitant]
  10. FENOFIBRATE [Concomitant]
  11. FEXOFENADINE [Concomitant]
  12. LOPID [Concomitant]
  13. MORPHINE [Concomitant]
  14. NASACORT [Concomitant]
  15. ONDANSETRON [Concomitant]
  16. PROCHLORPERAZINE [Concomitant]
  17. SODIUM CHLORIDE [Concomitant]
  18. ZOLADEX [Concomitant]

REACTIONS (10)
  - ANAEMIA [None]
  - COLITIS [None]
  - DEHYDRATION [None]
  - DIARRHOEA [None]
  - FATIGUE [None]
  - HAEMORRHOIDS [None]
  - HYPOTENSION [None]
  - RENAL FAILURE ACUTE [None]
  - SEPSIS [None]
  - TREATMENT NONCOMPLIANCE [None]
